FAERS Safety Report 8099411-5 (Version None)
Quarter: 2012Q1

REPORT INFORMATION
  Report Type: 
  Country: None (occurrence: None)
  Receive Date: 20120129
  Receipt Date: 20111005
  Transmission Date: 20120608
  Serious: Yes (Other)
  Sender: FDA-Public Use
  Company Number: US-ABBOTT-11P-163-0861492-00

PATIENT
  Age: 26 Year
  Sex: Female

DRUGS (3)
  1. HUMIRA [Suspect]
     Indication: CROHN'S DISEASE
     Dates: start: 20110422, end: 20110701
  2. PENTASA [Concomitant]
     Indication: PRODUCT USED FOR UNKNOWN INDICATION
  3. ENTOCORT EC [Concomitant]
     Indication: PRODUCT USED FOR UNKNOWN INDICATION

REACTIONS (2)
  - INCISION SITE ABSCESS [None]
  - SURGERY [None]
